FAERS Safety Report 6655342-6 (Version None)
Quarter: 2010Q1

REPORT INFORMATION
  Report Type: 
  Country: None (occurrence: None)
  Receive Date: 20100329
  Receipt Date: 20100317
  Transmission Date: 20100710
  Serious: Yes (Hospitalization, Other)
  Sender: FDA-Public Use
  Company Number: PHHY2010DE17077

PATIENT
  Age: 48 Year
  Sex: Female
  Weight: 94 kg

DRUGS (3)
  1. DICLOFENAC [Suspect]
     Indication: ABDOMINAL PAIN UPPER
     Dosage: 50 MG, BID
     Route: 048
     Dates: start: 20091214, end: 20091217
  2. PARACETAMOL [Suspect]
     Indication: PYREXIA
     Dosage: 500 MG, 5 TIMES A DAY
     Route: 048
     Dates: start: 20091212, end: 20091213
  3. CEFUROXIME [Suspect]
     Indication: PYELONEPHRITIS
     Dosage: 500 MG, QD
     Route: 048
     Dates: start: 20091215, end: 20091218

REACTIONS (9)
  - ABDOMINAL PAIN UPPER [None]
  - BLOOD PRESSURE INCREASED [None]
  - FLANK PAIN [None]
  - INFLAMMATION [None]
  - PLEURAL EFFUSION [None]
  - PLEURISY [None]
  - PYREXIA [None]
  - RENAL FAILURE ACUTE [None]
  - TUBULOINTERSTITIAL NEPHRITIS [None]
